FAERS Safety Report 16779364 (Version 1)
Quarter: 2019Q3

REPORT INFORMATION
  Report Type: Spontaneous
  Country: US (occurrence: US)
  Receive Date: 20190906
  Receipt Date: 20190906
  Transmission Date: 20191005
  Serious: No
  Sender: FDA-Public Use
  Company Number: US-GLENMARK PHARMACEUTICALS-2019GMK040985

PATIENT

DRUGS (1)
  1. MUPIROCIN CREAM USP, 2% [Suspect]
     Active Substance: MUPIROCIN
     Indication: PRODUCT USED FOR UNKNOWN INDICATION
     Dosage: UNK, SINGLE
     Route: 048
     Dates: start: 20190420, end: 20190420

REACTIONS (3)
  - Accidental exposure to product [Unknown]
  - Product appearance confusion [Unknown]
  - No adverse event [Unknown]

NARRATIVE: CASE EVENT DATE: 20190420
